FAERS Safety Report 23858059 (Version 1)
Quarter: 2024Q2

REPORT INFORMATION
  Report Type: Spontaneous
  Country: US (occurrence: None)
  Receive Date: 20240514
  Receipt Date: 20240514
  Transmission Date: 20240716
  Serious: Yes (Other)
  Sender: FDA-Public Use
  Company Number: None

PATIENT
  Age: 37 Year
  Sex: Female
  Weight: 63 kg

DRUGS (10)
  1. AMOXICILLIN [Suspect]
     Active Substance: AMOXICILLIN
     Indication: Pneumonia
     Dosage: OTHER QUANTITY : 1 CAPSULE(S);?FREQUENCY : 3 TIMES A DAY;?
     Route: 048
     Dates: start: 20240513, end: 20240513
  2. AMOXICILLIN [Suspect]
     Active Substance: AMOXICILLIN
     Indication: Sinusitis
  3. JUNEL FE 1/20 [Concomitant]
     Active Substance: ETHINYL ESTRADIOL\NORETHINDRONE ACETATE
  4. ALBUTEROL [Concomitant]
     Active Substance: ALBUTEROL
  5. cyclosporine ophthalmic [Concomitant]
  6. HERBALS\TURMERIC [Concomitant]
     Active Substance: HERBALS\TURMERIC
  7. LYSINE [Concomitant]
     Active Substance: LYSINE
  8. IRON [Concomitant]
     Active Substance: IRON
  9. MAGNESIUM [Concomitant]
     Active Substance: MAGNESIUM
  10. PROBIOTICS NOS [Concomitant]
     Active Substance: PROBIOTICS NOS

REACTIONS (6)
  - Vomiting [None]
  - Pelvic pain [None]
  - Presyncope [None]
  - Pain in extremity [None]
  - Pain in extremity [None]
  - Coccydynia [None]

NARRATIVE: CASE EVENT DATE: 20240513
